FAERS Safety Report 10023740 (Version 1)
Quarter: 2014Q1

REPORT INFORMATION
  Report Type: Spontaneous
  Country: US (occurrence: None)
  Receive Date: 20140319
  Receipt Date: 20140319
  Transmission Date: 20141002
  Serious: Yes (Life-Threatening, Hospitalization)
  Sender: FDA-Public Use
  Company Number: None

PATIENT
  Age: 62 Year
  Sex: Female
  Weight: 54.43 kg

DRUGS (9)
  1. FLUCONAZOLE [Suspect]
     Indication: ORAL CANDIDIASIS
     Dosage: 1 PILL, WEEKLY FOR 4 WEEKS
     Route: 048
     Dates: start: 20140129
  2. FLUCONAZOLE [Suspect]
     Indication: CANDIDA INFECTION
     Dosage: 1 PILL, WEEKLY FOR 4 WEEKS
     Route: 048
     Dates: start: 20140129
  3. FLUCONAZOLE [Suspect]
     Indication: CANDIDA INFECTION
     Dosage: 1 PILL, WEEKLY FOR 4 WEEKS
     Route: 048
     Dates: start: 20140129
  4. B VITAMINS [Concomitant]
  5. IRON [Concomitant]
  6. MAGNESIUM [Concomitant]
  7. CALCIUM [Concomitant]
  8. VITAMINS ADC [Concomitant]
  9. SOY PROTEIN [Concomitant]

REACTIONS (1)
  - Colitis [None]
